FAERS Safety Report 5894817-4 (Version None)
Quarter: 2008Q3

REPORT INFORMATION
  Report Type: 
  Country: None (occurrence: None)
  Receive Date: 20080922
  Receipt Date: 20080911
  Transmission Date: 20090109
  Serious: Yes (Death, Life-Threatening)
  Sender: FDA-Public Use
  Company Number: 004380

PATIENT
  Age: 59 Year
  Sex: Male

DRUGS (6)
  1. BUSULFEX [Suspect]
     Indication: STEM CELL TRANSPLANT
     Dosage: 184 MG, DAILY DOSE INTRAVENOUS
     Route: 042
     Dates: start: 20070816, end: 20070819
  2. FLUDARABINE PHOSPHATE [Concomitant]
  3. CYTARABINE [Concomitant]
  4. CYCLOSPORINE [Concomitant]
  5. MYCOPHENOLATE MOFETIL [Concomitant]
  6. FILGRASTIM (FILGRASTIM) [Concomitant]

REACTIONS (10)
  - ANOREXIA [None]
  - ASPERGILLOSIS [None]
  - CYTOMEGALOVIRUS VIRAEMIA [None]
  - DIARRHOEA [None]
  - INTERSTITIAL LUNG DISEASE [None]
  - MALAISE [None]
  - NAUSEA [None]
  - OROPHARYNGEAL PAIN [None]
  - PRURITUS [None]
  - STOMATITIS [None]
